FAERS Safety Report 5641430-X (Version None)
Quarter: 2008Q1

REPORT INFORMATION
  Report Type: 
  Country: None (occurrence: None)
  Receive Date: 20080227
  Receipt Date: 20070815
  Transmission Date: 20080703
  Serious: No
  Sender: FDA-Public Use
  Company Number: A0669940A

PATIENT
  Age: 31 Year
  Sex: Male

DRUGS (1)
  1. NICOTINE [Suspect]
     Dates: start: 20070730, end: 20070812

REACTIONS (2)
  - INTENTIONAL DRUG MISUSE [None]
  - PAIN IN JAW [None]
